FAERS Safety Report 24355037 (Version 2)
Quarter: 2024Q3

REPORT INFORMATION
  Report Type: Other
  Country: US (occurrence: US)
  Receive Date: 20240923
  Receipt Date: 20240927
  Transmission Date: 20241017
  Serious: No
  Sender: SUNOVION
  Company Number: US-SMPA-2024SPA002205AA

PATIENT

DRUGS (1)
  1. GEMTESA [Suspect]
     Active Substance: VIBEGRON
     Dosage: 75 MG
     Route: 048

REACTIONS (1)
  - Therapeutic response decreased [Unknown]
